FAERS Safety Report 25859524 (Version 1)
Quarter: 2025Q3

REPORT INFORMATION
  Report Type: Spontaneous
  Country: CN (occurrence: CN)
  Receive Date: 20250929
  Receipt Date: 20250929
  Transmission Date: 20251021
  Serious: Yes (Hospitalization)
  Sender: FRESENIUS KABI
  Company Number: CN-FreseniusKabi-FK202513146

PATIENT
  Age: 70 Year
  Sex: Male
  Weight: 55 kg

DRUGS (1)
  1. EGG PHOSPHOLIPIDS\GLYCERIN\MEDIUM-CHAIN TRIGLYCERIDES\SOYBEAN OIL [Suspect]
     Active Substance: EGG PHOSPHOLIPIDS\GLYCERIN\MEDIUM-CHAIN TRIGLYCERIDES\SOYBEAN OIL
     Indication: Malnutrition
     Dosage: FOA: INJECTION
     Route: 041
     Dates: start: 20250916, end: 20250916

REACTIONS (4)
  - Chills [Recovering/Resolving]
  - Pyrexia [Recovering/Resolving]
  - Dyspnoea [Recovering/Resolving]
  - Back pain [Recovering/Resolving]

NARRATIVE: CASE EVENT DATE: 20250916
